FAERS Safety Report 15676320 (Version 1)
Quarter: 2018Q4

REPORT INFORMATION
  Report Type: Spontaneous
  Country: GB (occurrence: GB)
  Receive Date: 20181130
  Receipt Date: 20181130
  Transmission Date: 20190205
  Serious: Yes (Disabling)
  Sender: FDA-Public Use
  Company Number: GB-PFIZER INC-2018485890

PATIENT
  Age: 31 Year
  Sex: Female

DRUGS (2)
  1. HYDROXYCHLOROQUINE [Suspect]
     Active Substance: HYDROXYCHLOROQUINE
     Dosage: 400 MG, 1X/DAY
     Dates: start: 201808
  2. SERTRALINE HCL [Suspect]
     Active Substance: SERTRALINE HYDROCHLORIDE
     Dosage: 150 MG, 1X/DAY
     Dates: start: 2017

REACTIONS (4)
  - Depressed mood [Not Recovered/Not Resolved]
  - Intentional self-injury [Not Recovered/Not Resolved]
  - Drug ineffective [Unknown]
  - Suicidal ideation [Not Recovered/Not Resolved]
